FAERS Safety Report 5289055-2 (Version None)
Quarter: 2007Q1

REPORT INFORMATION
  Report Type: 
  Country: None (occurrence: None)
  Receive Date: 20070118
  Receipt Date: 20060928
  Transmission Date: 20070707
  Serious: Yes (Other)
  Sender: FDA-Public Use
  Company Number: HQWYE406129SEP06

PATIENT
  Age: 84 Year
  Sex: Female
  Weight: 73.55 kg

DRUGS (10)
  1. ADVIL PM [Suspect]
     Indication: INSOMNIA
     Dosage: 2 CAPLETS, 1 TIME, ORAL
     Route: 048
     Dates: start: 20060926, end: 20060926
  2. GLYBURIDE [Concomitant]
  3. KLOR-CON [Concomitant]
  4. LIPITOR [Concomitant]
  5. LEVOTHYROXINE SODIUM [Concomitant]
  6. ATENOLOL [Concomitant]
  7. AVANDIA [Concomitant]
  8. FUROSEMIDE [Concomitant]
  9. DIPYRIDAMOLE [Concomitant]
  10. ACTONEL [Concomitant]

REACTIONS (2)
  - BLOOD GLUCOSE INCREASED [None]
  - PSYCHOMOTOR HYPERACTIVITY [None]
